FAERS Safety Report 6481257-2 (Version None)
Quarter: 2009Q4

REPORT INFORMATION
  Report Type: 
  Country: None (occurrence: None)
  Receive Date: 20091208
  Receipt Date: 20091201
  Transmission Date: 20100525
  Serious: Yes (Life-Threatening, Disabling, Other)
  Sender: FDA-Public Use
  Company Number: A0832498A

PATIENT
  Sex: Male

DRUGS (2)
  1. LAMICTAL [Suspect]
     Indication: BIPOLAR DISORDER
     Dosage: 50MG PER DAY
     Route: 048
     Dates: end: 20091101
  2. PREDNISONE [Concomitant]

REACTIONS (3)
  - PHARYNGEAL OEDEMA [None]
  - RASH [None]
  - STEVENS-JOHNSON SYNDROME [None]
